FAERS Safety Report 6815374-1 (Version None)
Quarter: 2010Q3

REPORT INFORMATION
  Report Type: 
  Country: None (occurrence: None)
  Receive Date: 20100702
  Receipt Date: 20100622
  Transmission Date: 20110219
  Serious: Yes (Hospitalization)
  Sender: FDA-Public Use
  Company Number: GXKR2010DK06200

PATIENT
  Sex: Male
  Weight: 58 kg

DRUGS (1)
  1. DICLON (NGX) [Suspect]
     Route: 048
     Dates: start: 20050501, end: 20100604

REACTIONS (5)
  - ARTERIAL INJURY [None]
  - EYELID PTOSIS [None]
  - MIGRAINE WITH AURA [None]
  - NERVE COMPRESSION [None]
  - PUPILS UNEQUAL [None]
